FAERS Safety Report 6428797-X (Version None)
Quarter: 2009Q4

REPORT INFORMATION
  Report Type: 
  Country: None (occurrence: None)
  Receive Date: 20091105
  Receipt Date: 20091023
  Transmission Date: 20100525
  Serious: Yes (Death)
  Sender: FDA-Public Use
  Company Number: US-ASTRAZENECA-2009SE12755

PATIENT
  Age: 56 Year
  Sex: Male

DRUGS (2)
  1. SYMBICORT [Suspect]
     Indication: ASTHMA
     Dosage: 160
     Route: 055
     Dates: start: 20090101
  2. CRESTOR [Suspect]
     Indication: BLOOD CHOLESTEROL
     Dosage: 20
     Route: 048
     Dates: start: 20090101

REACTIONS (1)
  - DEATH [None]
